FAERS Safety Report 18549884 (Version 1)
Quarter: 2020Q4

REPORT INFORMATION
  Report Type: Spontaneous
  Country: US (occurrence: US)
  Receive Date: 20201126
  Receipt Date: 20201126
  Transmission Date: 20210114
  Serious: Yes (Other)
  Sender: FDA-Public Use
  Company Number: US-TAKEDA-2020TUS052541

PATIENT
  Sex: Male
  Weight: 10.88 kg

DRUGS (8)
  1. LMX4 [Concomitant]
     Active Substance: LIDOCAINE
  2. REMICADE [Concomitant]
     Active Substance: INFLIXIMAB
  3. PREDNISOLONE. [Concomitant]
     Active Substance: PREDNISOLONE
  4. ACETAMINOPHEN. [Concomitant]
     Active Substance: ACETAMINOPHEN
  5. BUDESONIDE. [Concomitant]
     Active Substance: BUDESONIDE
  6. DIPHENHYDRAMINE. [Concomitant]
     Active Substance: DIPHENHYDRAMINE
  7. EPINEPHRINE. [Concomitant]
     Active Substance: EPINEPHRINE
  8. CUVITRU [Suspect]
     Active Substance: HUMAN IMMUNOGLOBULIN G
     Indication: COMBINED IMMUNODEFICIENCY
     Dosage: 3 GRAM, 1/WEEK
     Route: 058
     Dates: start: 20200218

REACTIONS (1)
  - Clostridium difficile infection [Unknown]
